FAERS Safety Report 5194554-8 (Version None)
Quarter: 2006Q4

REPORT INFORMATION
  Report Type: 
  Country: None (occurrence: None)
  Receive Date: 20061221
  Receipt Date: 20061218
  Transmission Date: 20070319
  Serious: Yes (Disabling)
  Sender: FDA-Public Use
  Company Number: GB-GDP-0613948

PATIENT
  Age: 29 Year
  Sex: Female

DRUGS (3)
  1. BENZOYL PEROXIDE [Suspect]
     Indication: ACNE
     Dates: start: 20060927, end: 20060928
  2. CLINDAMYCIN [Suspect]
     Indication: ACNE
     Dates: start: 20060927, end: 20060928
  3. ERYTHROMYCIN [Concomitant]

REACTIONS (1)
  - DERMATITIS ALLERGIC [None]
